FAERS Safety Report 9222472 (Version 3)
Quarter: 2013Q2

REPORT INFORMATION
  Report Type: Spontaneous
  Country: US (occurrence: US)
  Receive Date: 20130410
  Receipt Date: 20130625
  Transmission Date: 20140414
  Serious: No
  Sender: FDA-Public Use
  Company Number: US-JNJFOC-20130319035

PATIENT
  Age: 18 Year
  Sex: Female
  Weight: 61.24 kg

DRUGS (4)
  1. NEOSPORIN ECZEMA ESSENTIALS DAILY MOISTURIZING CREAM [Suspect]
     Indication: ECZEMA
     Dosage: 3 TABLESPOONS, ONCE AT NIGHT
     Route: 061
     Dates: start: 20130327, end: 20130328
  2. KENALOG [Suspect]
     Indication: PSORIASIS
     Dosage: 3 TABLESPOONS, ONCE AT NIGHT
     Route: 061
  3. JUNEL [Concomitant]
     Indication: DYSMENORRHOEA
     Dosage: 1/DAY, MONTH CYCLE
     Route: 065
     Dates: start: 2012
  4. GILDESS FE [Concomitant]
     Indication: CONTRACEPTION
     Route: 065
     Dates: start: 20130314

REACTIONS (1)
  - Dermatitis contact [Recovered/Resolved]
